FAERS Safety Report 10870370 (Version 11)
Quarter: 2015Q3

REPORT INFORMATION
  Report Type: Report from Study
  Country: US (occurrence: None)
  Receive Date: 20150223
  Receipt Date: 20150831
  Transmission Date: 20151125
  Serious: Yes (Hospitalization, Other)
  Sender: FDA-Public Use
  Company Number: ADR-2015-00261

PATIENT
  Age: 53 Year
  Sex: Female

DRUGS (32)
  1. VENTOLIN [Concomitant]
     Active Substance: ALBUTEROL SULFATE
  2. ZANAFLEX (TYZANIDINE HYDROCHLORIDE) [Concomitant]
  3. PERCOCET (OXYCODONE HYDROCHLORIDE, PARACETAMOL) [Concomitant]
  4. ORAL BACLOFEN [Concomitant]
     Active Substance: BACLOFEN
  5. PRILOSEC [Concomitant]
     Active Substance: OMEPRAZOLE MAGNESIUM
  6. MELATONIN [Concomitant]
     Active Substance: MELATONIN
  7. SINGULAIR [Concomitant]
     Active Substance: MONTELUKAST SODIUM
  8. DEBROX [Concomitant]
     Active Substance: CARBAMIDE PEROXIDE
  9. CALCIUM [Concomitant]
     Active Substance: CALCIUM
  10. CEFADROXIL. [Concomitant]
     Active Substance: CEFADROXIL
  11. MAXZIDE (HYDROCHLOROTHIAZIDE TRIAMTERENE) [Concomitant]
  12. PRILOSEC (OMEPRAZOLE) [Concomitant]
     Active Substance: OMEPRAZOLE MAGNESIUM
  13. OMEPRAZOLE. [Concomitant]
     Active Substance: OMEPRAZOLE
  14. NASACORT AQ AERO (TRIAMCINOLONE ACETONIDE) [Concomitant]
  15. LASIX [Concomitant]
     Active Substance: FUROSEMIDE
  16. MAXZIDE (TRIAMTERENE HCTZ) [Concomitant]
  17. TYLENOL NO. 3 (TYLENOL W/CODEINE NO3/CODEINE PHOSPHATE, PARACETAMOL) TABLET [Concomitant]
  18. ZYRTEC (CETRIZINE HYDROCHLORIDE) [Concomitant]
  19. VERAMYST (FLUTICASONE FUROATE) [Concomitant]
  20. WARFARIN SODIUM. [Concomitant]
     Active Substance: WARFARIN SODIUM
  21. TIZANIDINE HCL 4 MG TABS (TIZANIDINE HCL) [Concomitant]
  22. VOLTAREN 1% GEL (DICLOFENAC SODIUM) [Concomitant]
  23. COUMADIN [Concomitant]
     Active Substance: WARFARIN SODIUM
  24. KEPPRA [Concomitant]
     Active Substance: LEVETIRACETAM
  25. PULMACORT (BUDOSENIDE) [Concomitant]
  26. VITAMIN D (ERGOCALCIFEROL) [Concomitant]
     Active Substance: ERGOCALCIFEROL
  27. TRAMADOL (TRAMADOL HYDROCHLORIDE) [Concomitant]
     Active Substance: TRAMADOL HYDROCHLORIDE
  28. LIORESAL [Suspect]
     Active Substance: BACLOFEN
     Indication: MUSCLE SPASTICITY
     Dates: start: 20141218
  29. XARELTO [Concomitant]
     Active Substance: RIVAROXABAN
  30. CYMBALTA [Concomitant]
     Active Substance: DULOXETINE HYDROCHLORIDE
  31. SENNA (SENNA ALEXANDRIA) [Concomitant]
     Active Substance: SENNA LEAF
  32. CALCIUM D (CALCIUM CARBONATE, COLECALCIFEROL) [Concomitant]

REACTIONS (12)
  - Muscle spasms [None]
  - Device kink [None]
  - Contusion [None]
  - Muscle spasticity [None]
  - Balance disorder [None]
  - Device inversion [None]
  - Pain [None]
  - Medical device complication [None]
  - Unevaluable event [None]
  - Fall [None]
  - Condition aggravated [None]
  - Device occlusion [None]

NARRATIVE: CASE EVENT DATE: 20141218
